FAERS Safety Report 6997820-6 (Version None)
Quarter: 2010Q3

REPORT INFORMATION
  Report Type: 
  Country: None (occurrence: None)
  Receive Date: 20100920
  Receipt Date: 20100910
  Transmission Date: 20110219
  Serious: Yes (Hospitalization)
  Sender: FDA-Public Use
  Company Number: US-BIOGENIDEC-2010BI031764

PATIENT
  Sex: Female

DRUGS (1)
  1. AVONEX [Suspect]
     Indication: MULTIPLE SCLEROSIS
     Route: 030
     Dates: start: 20061005

REACTIONS (5)
  - DYSPHAGIA [None]
  - GASTROINTESTINAL OBSTRUCTION [None]
  - MUSCLE CONTRACTIONS INVOLUNTARY [None]
  - OROPHARYNGEAL PAIN [None]
  - VOMITING [None]
